FAERS Safety Report 19900163 (Version 2)
Quarter: 2022Q1

REPORT INFORMATION
  Report Type: Spontaneous
  Country: CA (occurrence: CA)
  Receive Date: 20210929
  Receipt Date: 20220209
  Transmission Date: 20220423
  Serious: Yes (Life-Threatening, Hospitalization, Other)
  Sender: FDA-Public Use
  Company Number: CA-TEVA-2021-CA-1959577

PATIENT
  Age: 52 Year
  Sex: Female

DRUGS (19)
  1. ALBUTEROL [Interacting]
     Active Substance: ALBUTEROL
     Indication: Product used for unknown indication
     Route: 065
  2. ALBUTEROL [Interacting]
     Active Substance: ALBUTEROL
     Indication: Asthma
     Route: 065
  3. DULOXETINE [Interacting]
     Active Substance: DULOXETINE
     Indication: Product used for unknown indication
     Route: 065
  4. DULOXETINE [Interacting]
     Active Substance: DULOXETINE
     Indication: Sciatica
     Dosage: 60 MILLIGRAM DAILY;
     Route: 065
  5. DULOXETINE [Interacting]
     Active Substance: DULOXETINE
     Route: 065
  6. DULOXETINE [Interacting]
     Active Substance: DULOXETINE
     Dosage: 30 MILLIGRAM DAILY;
     Route: 065
  7. XYLOMETAZOLINE [Interacting]
     Active Substance: XYLOMETAZOLINE
     Indication: Nasal congestion
     Route: 065
  8. XYLOMETAZOLINE [Interacting]
     Active Substance: XYLOMETAZOLINE
     Indication: Product used for unknown indication
  9. XYLOMETAZOLINE [Interacting]
     Active Substance: XYLOMETAZOLINE
     Route: 065
  10. XYLOMETAZOLINE [Interacting]
     Active Substance: XYLOMETAZOLINE
     Dosage: 1 DOSAGE FORMS DAILY;
  11. XYLOMETAZOLINE [Interacting]
     Active Substance: XYLOMETAZOLINE
     Indication: Product used for unknown indication
     Route: 061
  12. XYLOMETAZOLINE [Interacting]
     Active Substance: XYLOMETAZOLINE
     Indication: Nasal congestion
     Route: 061
  13. BUDESONIDE\FORMOTEROL [Interacting]
     Active Substance: BUDESONIDE\FORMOTEROL
     Indication: Product used for unknown indication
     Route: 065
  14. BUDESONIDE\FORMOTEROL [Interacting]
     Active Substance: BUDESONIDE\FORMOTEROL
     Indication: Asthma
     Route: 055
  15. BUDESONIDE\FORMOTEROL [Interacting]
     Active Substance: BUDESONIDE\FORMOTEROL
     Route: 065
  16. DULOXETINE HYDROCHLORIDE [Suspect]
     Active Substance: DULOXETINE HYDROCHLORIDE
     Indication: Sciatica
     Dosage: 60 MILLIGRAM DAILY;
     Route: 065
  17. DULOXETINE HYDROCHLORIDE [Suspect]
     Active Substance: DULOXETINE HYDROCHLORIDE
     Route: 065
  18. BUDESONIDE\FORMOTEROL [Concomitant]
     Active Substance: BUDESONIDE\FORMOTEROL
     Indication: Product used for unknown indication
     Route: 065
  19. ALBUTEROL [Concomitant]
     Active Substance: ALBUTEROL
     Indication: Product used for unknown indication

REACTIONS (14)
  - Allergy to animal [Recovered/Resolved]
  - Cerebral artery stenosis [Recovered/Resolved]
  - Headache [Recovered/Resolved]
  - Hypertension [Recovered/Resolved]
  - Nasal mucosal disorder [Recovered/Resolved]
  - Nasal septum deviation [Recovered/Resolved]
  - Nasal turbinate hypertrophy [Recovered/Resolved]
  - Rebound nasal congestion [Recovered/Resolved]
  - Reversible cerebral vasoconstriction syndrome [Recovered/Resolved]
  - Rhinorrhoea [Recovered/Resolved]
  - Subarachnoid haemorrhage [Recovered/Resolved]
  - Thunderclap headache [Recovered/Resolved]
  - Drug interaction [Recovered/Resolved]
  - Product use in unapproved indication [Recovered/Resolved]
